FAERS Safety Report 8008895-X (Version None)
Quarter: 2011Q4

REPORT INFORMATION
  Report Type: 
  Country: None (occurrence: None)
  Receive Date: 20111221
  Receipt Date: 20111206
  Transmission Date: 20120403
  Serious: Yes (Other)
  Sender: FDA-Public Use
  Company Number: 2011-01346

PATIENT
  Age: 61 Year
  Sex: Male

DRUGS (5)
  1. ASPIRIN [Concomitant]
  2. VERAPAMIL [Concomitant]
  3. LOSARTAN POTASSIUM [Concomitant]
  4. SIMVASTATIN [Suspect]
     Indication: HYPERTENSION
     Dosage: , (1 DOSAGE FORMS, ), ORAL
     Route: 048
  5. ROSUVASTATIN (UNKNOWN) [Suspect]
     Indication: PRODUCT USED FOR UNKNOWN INDICATION

REACTIONS (6)
  - LIMB DISCOMFORT [None]
  - BURSITIS [None]
  - MYALGIA [None]
  - APATHY [None]
  - ARTHRALGIA [None]
  - ASTHENIA [None]
